FAERS Safety Report 9251545 (Version 1)
Quarter: 2013Q1

REPORT INFORMATION
  Report Type: Spontaneous
  Country: US (occurrence: None)
  Receive Date: 20130305
  Receipt Date: 20130305
  Transmission Date: 20140127
  Serious: Yes (Other)
  Sender: FDA-Public Use
  Company Number: 163-21880-12040779

PATIENT
  Age: 44 Year
  Sex: Female
  Weight: 68.49 kg

DRUGS (17)
  1. REVLIMID [Suspect]
     Indication: LYMPHOMA
     Dosage: DAILY X 14 DAYS
     Route: 048
     Dates: start: 20120313
  2. ACYCLOVIR (ACICLOVIR) (ACICLOVIR) [Concomitant]
  3. ALBUTEROL (SALBUTAMOL) [Concomitant]
  4. ASPIRIN (ACETYLSALICYLIC ACID) [Concomitant]
  5. BENADRYL (DIPHENHYDRAMINE HYDROCHLORIDE) [Concomitant]
  6. DEXAMETHASONE (DEXAMETHASONE) [Concomitant]
  7. GABAPENTIN (GABAPENTIN) [Concomitant]
  8. MAGNESIUM (MAGNESIUM) [Concomitant]
  9. MIRALAX [Concomitant]
  10. MORPHINE [Concomitant]
  11. VITAMINS [Concomitant]
  12. NEXIUM [Concomitant]
  13. PHENERGAN (PROMETHAZINE HYDROCHLORIDE) [Concomitant]
  14. PREDNISONE (PREDNISONE) [Concomitant]
  15. TEMAZEPAM (TEMAZEPAM) [Concomitant]
  16. VELCADE (BORTEZOMIB) [Concomitant]
  17. ZOLOFT (SERTRALINE HYDROCHLORIDE) [Concomitant]

REACTIONS (2)
  - Swelling face [None]
  - Paraesthesia [None]
